FAERS Safety Report 8069236-5 (Version None)
Quarter: 2012Q1

REPORT INFORMATION
  Report Type: 
  Country: None (occurrence: None)
  Receive Date: 20120125
  Receipt Date: 20120117
  Transmission Date: 20120608
  Serious: Yes (Death)
  Sender: FDA-Public Use
  Company Number: BR-BRISTOL-MYERS SQUIBB COMPANY-16360257

PATIENT
  Age: 64 Year
  Sex: Female
  Weight: 128 kg

DRUGS (7)
  1. INSULIN [Concomitant]
     Indication: DIABETES MELLITUS
     Route: 048
     Dates: end: 20111110
  2. ATENOLOL [Concomitant]
     Indication: HYPERTENSION
     Route: 048
     Dates: end: 20111110
  3. ALENIA [Concomitant]
     Indication: DYSPNOEA
     Dosage: 1DF=24/800MCG
     Route: 055
     Dates: start: 20110801, end: 20111110
  4. LOSARTAN POTASSIUM [Concomitant]
     Indication: HYPERTENSION
     Route: 048
     Dates: end: 20111110
  5. TETRACYCLINE [Concomitant]
     Indication: FILARIASIS
     Route: 048
     Dates: end: 20111110
  6. METFORMIN HCL [Suspect]
     Indication: DIABETES MELLITUS
     Route: 048
  7. TETRACYCLINE [Concomitant]
     Indication: ERYSIPELAS
     Route: 048
     Dates: end: 20111110

REACTIONS (2)
  - CARDIO-RESPIRATORY ARREST [None]
  - DIZZINESS [None]
